FAERS Safety Report 6164351-5 (Version None)
Quarter: 2009Q2

REPORT INFORMATION
  Report Type: 
  Country: None (occurrence: None)
  Receive Date: 20090420
  Receipt Date: 20090403
  Transmission Date: 20091009
  Serious: Yes (Other)
  Sender: FDA-Public Use
  Company Number: ACO_00527_2009

PATIENT
  Age: 52 Year
  Sex: Female

DRUGS (3)
  1. TIZANIDINE HCL [Suspect]
     Indication: BACK PAIN
     Dosage: (3 MG ORAL)
     Route: 048
     Dates: start: 20080703
  2. LOXOPROFEN SODIUM [Concomitant]
  3. MUCOSTA [Concomitant]

REACTIONS (3)
  - BLOOD PRESSURE DECREASED [None]
  - HEART RATE INCREASED [None]
  - NAUSEA [None]
